FAERS Safety Report 21344891 (Version 1)
Quarter: 2022Q3

REPORT INFORMATION
  Report Type: Spontaneous
  Country: CN (occurrence: CN)
  Receive Date: 20220916
  Receipt Date: 20220916
  Transmission Date: 20221026
  Serious: Yes (Hospitalization, Other)
  Sender: FDA-Public Use
  Company Number: CN-PFIZER INC-PV202200063814

PATIENT
  Age: 54 Year
  Sex: Male
  Weight: 55.5 kg

DRUGS (4)
  1. CYTARABINE [Suspect]
     Active Substance: CYTARABINE
     Indication: Neoplasm
     Dosage: 4.77 G, 2X/DAY
     Route: 041
     Dates: start: 20220805, end: 20220805
  2. CYTARABINE [Suspect]
     Active Substance: CYTARABINE
     Dosage: 4.77 G, 2X/DAY
     Route: 041
     Dates: start: 20220809, end: 20220811
  3. METHOTREXATE SODIUM [Suspect]
     Active Substance: METHOTREXATE SODIUM
     Indication: Neoplasm
     Dosage: 1.59 G, 1X/DAY
     Route: 041
     Dates: start: 20220805, end: 20220805
  4. METHOTREXATE SODIUM [Suspect]
     Active Substance: METHOTREXATE SODIUM
     Dosage: 1.59 G, 1X/DAY
     Route: 041
     Dates: start: 20220808, end: 20220809

REACTIONS (1)
  - Myelosuppression [Recovering/Resolving]

NARRATIVE: CASE EVENT DATE: 20220814
